FAERS Safety Report 20773537 (Version 1)
Quarter: 2022Q2

REPORT INFORMATION
  Report Type: Spontaneous
  Country: US (occurrence: US)
  Receive Date: 20220502
  Receipt Date: 20220502
  Transmission Date: 20220721
  Serious: Yes (Other)
  Sender: FDA-Public Use
  Company Number: US-AMGEN-USASP2022072268

PATIENT
  Age: 76 Year
  Sex: Male

DRUGS (2)
  1. REPATHA [Suspect]
     Active Substance: EVOLOCUMAB
     Indication: Product used for unknown indication
     Dosage: UNK
     Route: 065
  2. REPATHA [Suspect]
     Active Substance: EVOLOCUMAB
     Dosage: UNK UNK, Q3WK
     Route: 065

REACTIONS (5)
  - Spinal fracture [Unknown]
  - Road traffic accident [Unknown]
  - Off label use [Unknown]
  - Gait inability [Recovering/Resolving]
  - Coccydynia [Recovering/Resolving]

NARRATIVE: CASE EVENT DATE: 20220401
